FAERS Safety Report 25390792 (Version 1)
Quarter: 2025Q2

REPORT INFORMATION
  Report Type: Spontaneous
  Country: CZ (occurrence: CZ)
  Receive Date: 20250603
  Receipt Date: 20250603
  Transmission Date: 20250717
  Serious: Yes (Life-Threatening, Other)
  Sender: MYLAN
  Company Number: CZ-002147023-NVSC2025CZ082796

PATIENT
  Age: 52 Year
  Sex: Female

DRUGS (4)
  1. IMATINIB [Suspect]
     Active Substance: IMATINIB
     Indication: Chronic myeloid leukaemia
  2. IMATINIB [Suspect]
     Active Substance: IMATINIB
     Route: 065
  3. IMATINIB [Suspect]
     Active Substance: IMATINIB
     Route: 065
  4. IMATINIB [Suspect]
     Active Substance: IMATINIB

REACTIONS (5)
  - Liver disorder [Unknown]
  - Philadelphia chromosome negative [Unknown]
  - Hepatotoxicity [Unknown]
  - Pancreatitis [Unknown]
  - Therapeutic product effect incomplete [Unknown]
